FAERS Safety Report 5818616-4 (Version None)
Quarter: 2008Q3

REPORT INFORMATION
  Report Type: 
  Country: None (occurrence: None)
  Receive Date: 20080722
  Receipt Date: 20080715
  Transmission Date: 20090109
  Serious: Yes (Hospitalization, Other)
  Sender: FDA-Public Use
  Company Number: US-ELI_LILLY_AND_COMPANY-US200806003902

PATIENT
  Sex: Female

DRUGS (8)
  1. BYETTA [Suspect]
     Indication: TYPE 2 DIABETES MELLITUS
     Dosage: 5 UG, 2/D
     Route: 058
     Dates: start: 20050913, end: 20051013
  2. BYETTA [Suspect]
     Dosage: 10 UG, 2/D
     Route: 058
     Dates: start: 20051025, end: 20060913
  3. NOVOLOG [Concomitant]
     Indication: DIABETES MELLITUS
     Dosage: UNK U, UNK
     Dates: start: 20060101
  4. LANTUS [Concomitant]
     Indication: DIABETES MELLITUS
     Dosage: 50 U, EACH EVENING
  5. EFFEXOR XR [Concomitant]
     Indication: DEPRESSION
  6. AMARYL [Concomitant]
     Indication: DIABETES MELLITUS
  7. ACTOS [Concomitant]
     Indication: DIABETES MELLITUS
  8. PRECOSE [Concomitant]
     Indication: DIABETES MELLITUS

REACTIONS (4)
  - ABDOMINAL PAIN UPPER [None]
  - BLADDER CANCER [None]
  - KIDNEY INFECTION [None]
  - URETERIC OBSTRUCTION [None]
